FAERS Safety Report 10457877 (Version 1)
Quarter: 2014Q3

REPORT INFORMATION
  Report Type: Spontaneous
  Country: HR (occurrence: HR)
  Receive Date: 20140916
  Receipt Date: 20140916
  Transmission Date: 20150326
  Serious: Yes (Hospitalization, Other)
  Sender: FDA-Public Use
  Company Number: HR-GLAXOSMITHKLINE-B1033983A

PATIENT

DRUGS (2)
  1. CLOXACILLIN [Suspect]
     Active Substance: CLOXACILLIN
     Route: 065
  2. CEFUROXIME AXETIL. [Suspect]
     Active Substance: CEFUROXIME AXETIL
     Route: 065

REACTIONS (2)
  - Toxic epidermal necrolysis [Unknown]
  - Drug interaction [Unknown]
